FAERS Safety Report 9025886 (Version 12)
Quarter: 2013Q4

REPORT INFORMATION
  Report Type: Report from Study
  Country: TW (occurrence: TW)
  Receive Date: 20130122
  Receipt Date: 20131029
  Transmission Date: 20140711
  Serious: Yes (Death, Life-Threatening, Hospitalization, Other)
  Sender: FDA-Public Use
  Company Number: TW-JNJFOC-20130107811

PATIENT
  Age: 82 Year
  Sex: Male
  Weight: 60.4 kg

DRUGS (13)
  1. STELARA [Suspect]
     Indication: PSORIASIS
     Route: 058
     Dates: start: 20120806
  2. STELARA [Suspect]
     Indication: PSORIASIS
     Route: 058
     Dates: start: 20120904
  3. STELARA [Suspect]
     Indication: PSORIASIS
     Dosage: 3RD TREATMENT
     Route: 058
     Dates: start: 20121127
  4. GINKO BILOBA EXTRACT [Concomitant]
     Indication: CEREBROVASCULAR DISORDER
     Route: 048
     Dates: start: 20120509
  5. LANSOPRAZOLE [Concomitant]
     Indication: GASTRIC ULCER
     Route: 048
     Dates: start: 20120509
  6. LORAZEPAM [Concomitant]
     Indication: INSOMNIA
     Route: 048
     Dates: start: 20120801
  7. LIVER HYDROLYSATE PREPARATION [Concomitant]
     Indication: HEPATIC CIRRHOSIS
     Dosage: 2 TABLETS
     Route: 048
     Dates: start: 20120509
  8. PIRACETAM [Concomitant]
     Route: 048
  9. TAMSULOSIN HCL [Concomitant]
     Indication: BENIGN PROSTATIC HYPERPLASIA
     Route: 048
     Dates: start: 20121031
  10. FURSULTIAMINE [Concomitant]
     Dosage: 2 TABLETS
     Route: 048
  11. VITAMIN B COMPLEX [Concomitant]
     Indication: NUTRITIONAL SUPPLEMENTATION
     Dosage: 2 CAPSULES
     Route: 048
     Dates: start: 20120926
  12. VITAMIN C [Concomitant]
     Indication: NUTRITIONAL SUPPLEMENTATION
     Dosage: 2 CAPSULES
     Route: 048
     Dates: start: 20120926
  13. THIAMINE [Concomitant]
     Indication: NUTRITIONAL SUPPLEMENTATION
     Dates: start: 20120606

REACTIONS (2)
  - Hepatic cancer recurrent [Fatal]
  - Hepatitis C [Unknown]
